FAERS Safety Report 5941311-8 (Version None)
Quarter: 2008Q4

REPORT INFORMATION
  Report Type: 
  Country: None (occurrence: None)
  Receive Date: 20081103
  Receipt Date: 20081103
  Transmission Date: 20090506
  Serious: Yes (Other)
  Sender: FDA-Public Use
  Company Number: None

PATIENT
  Age: 27 Year
  Sex: Female
  Weight: 81.6475 kg

DRUGS (1)
  1. CHANTIX [Suspect]
     Indication: SMOKING CESSATION THERAPY
     Dosage: DAILY 2X
     Dates: start: 20070901, end: 20071001

REACTIONS (7)
  - AFFECT LABILITY [None]
  - ANGER [None]
  - DEPRESSION [None]
  - EXPRESSIVE LANGUAGE DISORDER [None]
  - MOOD ALTERED [None]
  - SUICIDAL IDEATION [None]
  - THINKING ABNORMAL [None]
